FAERS Safety Report 8916923 (Version 1)
Quarter: 2012Q4

REPORT INFORMATION
  Report Type: 
  Country: US (occurrence: US)
  Receive Date: 20121120
  Receipt Date: 20121120
  Transmission Date: 20130627
  Serious: Yes (Hospitalization)
  Sender: FDA-Public Use
  Company Number: US-ABBOTT-12P-163-1008295-00

PATIENT
  Sex: Female
  Weight: 53.12 kg

DRUGS (14)
  1. VICODIN [Suspect]
     Indication: FIBROMYALGIA
     Dates: start: 1994
  2. NEURONTIN [Suspect]
     Indication: FIBROMYALGIA
     Dates: end: 2010
  3. CYMBALTA [Suspect]
     Indication: FIBROMYALGIA
     Dates: start: 2009, end: 2010
  4. CYMBALTA [Suspect]
     Dates: start: 2010, end: 2010
  5. CYMBALTA [Suspect]
     Dates: start: 201010
  6. OXYCODONE [Suspect]
     Indication: PAIN
  7. OXYCODONE [Suspect]
     Indication: FIBROMYALGIA
  8. OXYCODONE [Suspect]
     Indication: BACK INJURY
  9. CLONAZEPAM [Suspect]
     Indication: ANXIETY DISORDER
  10. CLONAZEPAM [Suspect]
     Indication: FIBROMYALGIA
  11. LYRICA [Suspect]
     Indication: FIBROMYALGIA
     Dates: start: 20120701
  12. SKELAXIN [Suspect]
     Indication: FIBROMYALGIA
     Dates: start: 1998
  13. UNSPECIFIED MUSCLE RELAXANTS [Suspect]
     Indication: FIBROMYALGIA
  14. TOPAMAX [Suspect]
     Indication: FIBROMYALGIA
     Dates: start: 2007, end: 2007

REACTIONS (9)
  - Panic attack [Unknown]
  - Tachycardia [Unknown]
  - Hypoaesthesia [Not Recovered/Not Resolved]
  - Burning sensation [Recovered/Resolved]
  - Amnesia [Unknown]
  - Mood swings [Unknown]
  - Confusional state [Unknown]
  - Drug ineffective [Unknown]
  - Paraesthesia [None]
